FAERS Safety Report 5537534-2 (Version None)
Quarter: 2007Q4

REPORT INFORMATION
  Report Type: 
  Country: None (occurrence: None)
  Receive Date: 20071207
  Receipt Date: 20071127
  Transmission Date: 20080405
  Serious: Yes (Hospitalization, Other)
  Sender: FDA-Public Use
  Company Number: US-AMGEN-QUU254215

PATIENT
  Sex: Female

DRUGS (6)
  1. ENBREL [Suspect]
     Indication: RHEUMATOID ARTHRITIS
     Route: 058
     Dates: start: 20011219
  2. METHOTREXATE [Concomitant]
     Route: 048
  3. ORENCIA [Concomitant]
  4. PREDNISONE TAB [Concomitant]
  5. INFLIXIMAB [Concomitant]
  6. HUMIRA [Concomitant]

REACTIONS (9)
  - ARTHROPATHY [None]
  - CHEST PAIN [None]
  - DRUG INEFFECTIVE [None]
  - INJECTION SITE ERYTHEMA [None]
  - INJECTION SITE INDURATION [None]
  - INJECTION SITE PAIN [None]
  - INJECTION SITE PRURITUS [None]
  - JOINT DESTRUCTION [None]
  - SYSTEMIC LUPUS ERYTHEMATOSUS [None]
